FAERS Safety Report 23063712 (Version 1)
Quarter: 2023Q4

REPORT INFORMATION
  Report Type: Spontaneous
  Country: CH (occurrence: CH)
  Receive Date: 20231013
  Receipt Date: 20231013
  Transmission Date: 20240110
  Serious: Yes (Other)
  Sender: FDA-Public Use
  Company Number: None

PATIENT
  Age: 0 Year

DRUGS (6)
  1. CIMZIA [Suspect]
     Active Substance: CERTOLIZUMAB PEGOL
     Indication: Ankylosing spondylitis
     Dosage: 200 MILLIGRAM, EV 15 DAYS
     Route: 064
     Dates: start: 20221120, end: 202303
  2. ENBREL [Suspect]
     Active Substance: ETANERCEPT
     Indication: Ankylosing spondylitis
     Dosage: 50 MILLIGRAM, WEEKLY (QW)
     Dates: end: 202211
  3. ZALDIAR [Suspect]
     Active Substance: ACETAMINOPHEN\TRAMADOL HYDROCHLORIDE
     Indication: Ankylosing spondylitis
     Dosage: MAX 4X/DAY ; AS NECESSARY INGREDIENT (PARACETAMOL): 325MG; INGREDIENT (TRAMADOL HYDROCHLORIDE): 37.5
     Dates: start: 202211
  4. TRANDATE [Suspect]
     Active Substance: LABETALOL HYDROCHLORIDE
     Indication: Gestational hypertension
     Dosage: UNK
     Dates: start: 202301
  5. ASPIRIN [Suspect]
     Active Substance: ASPIRIN
     Indication: Prophylaxis
     Dosage: ASPIRIN 100 MG 1X/DAY FROM 10 SA UNTIL 36 SA
     Dates: start: 2022, end: 202303
  6. ZOLPIDEM TARTRATE [Suspect]
     Active Substance: ZOLPIDEM TARTRATE
     Indication: Sleep disorder
     Dosage: UNK
     Dates: end: 202212

REACTIONS (2)
  - Low birth weight baby [Unknown]
  - Maternal exposure during pregnancy [Unknown]

NARRATIVE: CASE EVENT DATE: 20221120
